FAERS Safety Report 8816733 (Version 1)
Quarter: 2012Q4

REPORT INFORMATION
  Report Type: Spontaneous
  Country: US (occurrence: None)
  Receive Date: 20121001
  Receipt Date: 20121001
  Transmission Date: 20130627
  Serious: Yes (Hospitalization)
  Sender: FDA-Public Use
  Company Number: 12002158

PATIENT
  Age: 66 Year
  Sex: Female

DRUGS (11)
  1. KLOR CON M [Suspect]
     Dosage: 20 mEq, once q 3 days, Oral
     Route: 048
     Dates: start: 201203
  2. LASIX [Concomitant]
  3. HYDROCHLOROTIAZIDE (HYDROCHLOROTHIAZIDE) [Concomitant]
  4. SPIRIVA (TIOTROPIUM BROMIDE) [Concomitant]
  5. ADVAIR (FLUTICASONE PROPIONATE, SALMETEROL XINAFOATE) [Concomitant]
  6. PROAIR (FLUTICASONE PROPIONATE) [Concomitant]
  7. ASPIRIN (ACETYLSALICYLIC ACID) [Concomitant]
  8. LEVOTHYROXINE (LEVOTHYROXINE) [Concomitant]
  9. XANAX (ALPRAZOLAM) [Concomitant]
  10. NITROSTAT (GLYCERYL TRINITRATE) [Concomitant]
  11. TIAZAC /00489702/ (DILTIAZEM HYDROCHLORIDE) [Concomitant]

REACTIONS (9)
  - Drug ineffective [None]
  - Dyspnoea [None]
  - Asthenia [None]
  - Chest discomfort [None]
  - Heart rate increased [None]
  - Hypertension [None]
  - Respiratory tract inflammation [None]
  - Emphysema [None]
  - Condition aggravated [None]
